FAERS Safety Report 9459431 (Version 3)
Quarter: 2016Q1

REPORT INFORMATION
  Report Type: Report from Study
  Country: US (occurrence: US)
  Receive Date: 20130815
  Receipt Date: 20160204
  Transmission Date: 20160526
  Serious: Yes (Other)
  Sender: FDA-Public Use
  Company Number: US-ROCHE-1262142

PATIENT
  Age: 53 Year
  Sex: Female

DRUGS (10)
  1. BACLOFEN. [Concomitant]
     Active Substance: BACLOFEN
  2. LISINOPRIL. [Concomitant]
     Active Substance: LISINOPRIL
  3. ARTIFICIAL TEARS [Concomitant]
     Active Substance: GLYCERIN\HYPROMELLOSES\POLYETHYLENE GLYCOL 400
     Route: 065
  4. AVASTIN [Suspect]
     Active Substance: BEVACIZUMAB
     Indication: RETINAL VEIN OCCLUSION
     Dosage: MOST RECENT DOSE ON 14/MAR/2013.
     Route: 050
  5. AVASTIN [Suspect]
     Active Substance: BEVACIZUMAB
     Indication: CYSTOID MACULAR OEDEMA
  6. LOSARTAN. [Concomitant]
     Active Substance: LOSARTAN
  7. MYDRIACYL [Concomitant]
     Active Substance: TROPICAMIDE
     Dosage: OS
     Route: 047
  8. NEOSYNEPHRINE (PHENYLEPHRINE) [Concomitant]
     Dosage: OS
     Route: 047
  9. LUCENTIS [Suspect]
     Active Substance: RANIBIZUMAB
     Indication: RETINAL VEIN OCCLUSION
     Dosage: ^MOST RECENT DOSE ON 06AUG2013, OS
     Route: 050
  10. LUCENTIS [Suspect]
     Active Substance: RANIBIZUMAB
     Indication: CYSTOID MACULAR OEDEMA

REACTIONS (6)
  - Eye irritation [Unknown]
  - Vision blurred [Recovering/Resolving]
  - Off label use [Unknown]
  - Visual impairment [Unknown]
  - Eye pain [Recovering/Resolving]
  - Headache [Not Recovered/Not Resolved]

NARRATIVE: CASE EVENT DATE: 201303
